FAERS Safety Report 7347730-X (Version None)
Quarter: 2011Q1

REPORT INFORMATION
  Report Type: 
  Country: None (occurrence: None)
  Receive Date: 20110218
  Receipt Date: 20100916
  Transmission Date: 20110831
  Serious: Yes (Hospitalization)
  Sender: FDA-Public Use
  Company Number: 2010026455

PATIENT
  Age: 17 Year
  Sex: Female
  Weight: 61.6892 kg

DRUGS (3)
  1. HIZENTRA [Suspect]
     Indication: HYPOGAMMAGLOBULINAEMIA
     Dosage: 8 G 1X/WEEK, 40 ML IN 3 SITES OVER 1-2 HOURS SUBCUTANEOUS
     Route: 058
     Dates: start: 20100903, end: 20100903
  2. OVCON-35 [Concomitant]
  3. VENTOLIN [Concomitant]

REACTIONS (2)
  - DIARRHOEA [None]
  - DEHYDRATION [None]
